FAERS Safety Report 8849399 (Version 2)
Quarter: 2012Q4

REPORT INFORMATION
  Report Type: 
  Country: JP (occurrence: JP)
  Receive Date: 20121017
  Receipt Date: 20121023
  Transmission Date: 20130627
  Serious: Yes (Hospitalization)
  Sender: FDA-Public Use
  Company Number: JP-B.I. PHARMACEUTICALS,INC./RIDGEFIELD-2012-BP-25195NB

PATIENT
  Age: 63 Year
  Sex: Male
  Weight: 96 kg

DRUGS (2)
  1. PRADAXA [Suspect]
     Indication: ATRIAL FIBRILLATION
     Dosage: 220 mg
     Route: 048
     Dates: start: 20120912
  2. NORVASC [Concomitant]
     Indication: HYPERTENSION
     Dosage: 5 mg
     Route: 048

REACTIONS (2)
  - Laceration [Recovered/Resolved]
  - Fall [Unknown]
